FAERS Safety Report 4731941-3 (Version None)
Quarter: 2005Q3

REPORT INFORMATION
  Report Type: 
  Country: None (occurrence: None)
  Receive Date: 20050802
  Receipt Date: 20050802
  Transmission Date: 20060218
  Serious: Yes (Other)
  Sender: FDA-Public Use
  Company Number: None

PATIENT
  Age: 41 Year
  Sex: Female
  Weight: 71 kg

DRUGS (9)
  1. OXYBUTYNIN CHLORIDE [Suspect]
  2. OXYBUTYNIN CHLORIDE [Concomitant]
  3. SUNSCREEN-30 [Concomitant]
  4. GABAPENTIN [Concomitant]
  5. AZITHROMYCIN [Concomitant]
  6. GUAIFENESIN [Concomitant]
  7. IRBESARTAN [Concomitant]
  8. MEDROXYPROGESTERONE [Concomitant]
  9. PHENYTOIN [Concomitant]

REACTIONS (2)
  - CONSTIPATION [None]
  - DRY MOUTH [None]
